FAERS Safety Report 24061647 (Version 1)
Quarter: 2024Q3

REPORT INFORMATION
  Report Type: Spontaneous
  Country: US (occurrence: None)
  Receive Date: 20240705
  Receipt Date: 20240705
  Transmission Date: 20241017
  Serious: Yes (Hospitalization)
  Sender: Public
  Company Number: None

PATIENT
  Sex: Female

DRUGS (1)
  1. XOLAIR [Suspect]
     Active Substance: OMALIZUMAB
     Indication: Urticaria
     Dosage: FREQ: INJECT 2 SYRINGES (300 MG) UNDER THE SKIN (SUBCUTANEOUSLY) EVERY 4 WEEKS?
     Route: 058
     Dates: start: 20231207

REACTIONS (2)
  - Asthenia [None]
  - Aphasia [None]
